FAERS Safety Report 22065307 (Version 1)
Quarter: 2023Q1

REPORT INFORMATION
  Report Type: Spontaneous
  Country: IT (occurrence: IT)
  Receive Date: 20230306
  Receipt Date: 20230306
  Transmission Date: 20230418
  Serious: Yes (Other)
  Sender: FDA-Public Use
  Company Number: IT-002147023-NVSC2023IT046336

PATIENT
  Age: 51 Year
  Sex: Female

DRUGS (1)
  1. XOLAIR [Suspect]
     Active Substance: OMALIZUMAB
     Indication: Asthma
     Dosage: 600 MG, QMO
     Route: 058
     Dates: start: 201901, end: 202302

REACTIONS (8)
  - Syncope [Recovering/Resolving]
  - Palpitations [Recovering/Resolving]
  - Hypoaesthesia [Recovering/Resolving]
  - Administration site swelling [Recovering/Resolving]
  - Somnolence [Recovering/Resolving]
  - Fatigue [Recovering/Resolving]
  - Paraesthesia [Recovering/Resolving]
  - Injection site pain [Recovering/Resolving]

NARRATIVE: CASE EVENT DATE: 20230213
